FAERS Safety Report 10424541 (Version 2)
Quarter: 2015Q1

REPORT INFORMATION
  Report Type: Report from Study
  Country: US (occurrence: US)
  Receive Date: 20140902
  Receipt Date: 20150306
  Transmission Date: 20150720
  Serious: Yes (Hospitalization)
  Sender: FDA-Public Use
  Company Number: US-ALEXION PHARMACEUTICALS INC.-A201403179

PATIENT

DRUGS (1)
  1. SOLIRIS [Suspect]
     Active Substance: ECULIZUMAB
     Indication: PRODUCT USED FOR UNKNOWN INDICATION
     Route: 042

REACTIONS (7)
  - Hypertension [Not Recovered/Not Resolved]
  - Developmental delay [Not Recovered/Not Resolved]
  - Unevaluable event [Recovered/Resolved]
  - Personality change [Unknown]
  - Speech disorder developmental [Unknown]
  - Malaise [Unknown]
  - Psychomotor hyperactivity [Unknown]

NARRATIVE: CASE EVENT DATE: 20140715
